FAERS Safety Report 12328440 (Version 1)
Quarter: 2016Q2

REPORT INFORMATION
  Report Type: Spontaneous
  Country: US (occurrence: US)
  Receive Date: 20160503
  Receipt Date: 20160503
  Transmission Date: 20160815
  Serious: No
  Sender: FDA-Public Use
  Company Number: US-BEH-2014047079

PATIENT
  Age: 28 Year
  Sex: Female

DRUGS (1)
  1. HIZENTRA [Suspect]
     Active Substance: HUMAN IMMUNOGLOBULIN G
     Dosage: ??-MAR-2012 TO ??-OCT-2014

REACTIONS (4)
  - Administration site reaction [Recovering/Resolving]
  - Scar [Recovering/Resolving]
  - Extravasation [Recovering/Resolving]
  - Administration site swelling [Recovering/Resolving]

NARRATIVE: CASE EVENT DATE: 201406
